FAERS Safety Report 21526700 (Version 2)
Quarter: 2023Q1

REPORT INFORMATION
  Report Type: Report from Study
  Country: US (occurrence: US)
  Receive Date: 20221031
  Receipt Date: 20230117
  Transmission Date: 20230417
  Serious: Yes (Hospitalization, Other)
  Sender: FDA-Public Use
  Company Number: US-AMGEN-USASP2022181498

PATIENT
  Age: 62 Year
  Sex: Female

DRUGS (3)
  1. REPATHA [Suspect]
     Active Substance: EVOLOCUMAB
     Indication: Hypercholesterolaemia
     Dosage: 140 MILLIGRAM, Q2WK
     Route: 058
     Dates: start: 2021
  2. REPATHA [Suspect]
     Active Substance: EVOLOCUMAB
     Indication: Blood cholesterol increased
     Dosage: 140 MILLIGRAM, Q2WK
     Route: 058
  3. COUMADIN [Concomitant]
     Active Substance: WARFARIN SODIUM
     Dosage: UNK

REACTIONS (7)
  - Mitral valve incompetence [Unknown]
  - Hypersensitivity [Unknown]
  - Cardiomegaly [Unknown]
  - Drug dose omission by device [Unknown]
  - Device difficult to use [Unknown]
  - COVID-19 [Recovered/Resolved]
  - International normalised ratio fluctuation [Unknown]

NARRATIVE: CASE EVENT DATE: 20220101
